FAERS Safety Report 6391885-0 (Version None)
Quarter: 2009Q4

REPORT INFORMATION
  Report Type: 
  Country: None (occurrence: None)
  Receive Date: 20091007
  Receipt Date: 20091001
  Transmission Date: 20100525
  Serious: Yes (Other)
  Sender: FDA-Public Use
  Company Number: IT-ABBOTT-09P-083-0600217-00

PATIENT
  Age: 11 Year
  Sex: Female

DRUGS (3)
  1. VALPROIC ACID [Suspect]
     Indication: EPILEPSY
     Dosage: 24 MG/KG/DAY IN TWO DOSES
  2. VALPROIC ACID [Suspect]
  3. VALPROIC ACID [Suspect]

REACTIONS (1)
  - HEPATIC STEATOSIS [None]
